FAERS Safety Report 18917769 (Version 2)
Quarter: 2021Q4

REPORT INFORMATION
  Report Type: Report from Study
  Country: ES (occurrence: ES)
  Receive Date: 20210219
  Receipt Date: 20211201
  Transmission Date: 20220303
  Serious: Yes (Hospitalization)
  Sender: FDA-Public Use
  Company Number: ES-NOVARTISPH-NVSC2020ES332769

PATIENT
  Age: 70 Year
  Sex: Female
  Weight: 66.7 kg

DRUGS (21)
  1. CAPMATINIB [Suspect]
     Active Substance: CAPMATINIB
     Indication: Non-small cell lung cancer
     Dosage: 800 MG, BID
     Route: 048
     Dates: start: 20201023, end: 20201103
  2. CAPMATINIB [Suspect]
     Active Substance: CAPMATINIB
     Indication: Metastasis
     Dosage: BID
     Route: 048
     Dates: start: 20201104, end: 20201202
  3. CAPMATINIB [Suspect]
     Active Substance: CAPMATINIB
     Dosage: 800 MG, BID
     Route: 048
     Dates: start: 20201203, end: 20201212
  4. CAPMATINIB [Suspect]
     Active Substance: CAPMATINIB
     Dosage: BID
     Route: 048
     Dates: start: 20201213, end: 20210203
  5. PEMBROLIZUMAB [Suspect]
     Active Substance: PEMBROLIZUMAB
     Indication: Non-small cell lung cancer
     Dosage: 200 MG, Q3W
     Route: 042
     Dates: start: 20201023, end: 20201023
  6. PEMBROLIZUMAB [Suspect]
     Active Substance: PEMBROLIZUMAB
     Indication: Metastasis
     Dosage: 200 MG, Q3W
     Route: 042
     Dates: start: 20201203, end: 20201203
  7. PEMBROLIZUMAB [Suspect]
     Active Substance: PEMBROLIZUMAB
     Dosage: 200 MG, Q3W
     Route: 042
     Dates: start: 20210203
  8. METAMIZOLE [Concomitant]
     Active Substance: METAMIZOLE
     Indication: Pyrexia
     Dosage: 2 G, TID
     Route: 042
     Dates: start: 20201104, end: 20201109
  9. ENALAPRIL [Concomitant]
     Active Substance: ENALAPRIL
     Indication: Hypertension
     Dosage: 20 MG, QD
     Route: 048
     Dates: start: 2018
  10. BECLOMETHASONE [Concomitant]
     Active Substance: BECLOMETHASONE
     Indication: Prophylaxis
     Dosage: 200 UG, BID
     Route: 055
     Dates: start: 20201106, end: 20201109
  11. FORMOTEROL [Concomitant]
     Active Substance: FORMOTEROL
     Indication: Prophylaxis
     Dosage: 6 UG, BID
     Route: 055
     Dates: start: 20201106, end: 20201109
  12. CEFEPIME [Concomitant]
     Active Substance: CEFEPIME HYDROCHLORIDE
     Indication: Pyrexia
     Dosage: 2 G, TID
     Route: 042
     Dates: start: 20201105, end: 20201109
  13. MEROPENEM [Concomitant]
     Active Substance: MEROPENEM
     Indication: Pyrexia
     Dosage: 1 G, TID
     Route: 042
     Dates: start: 20201104, end: 20201105
  14. LORAZEPAM [Concomitant]
     Active Substance: LORAZEPAM
     Indication: Anxiety
     Dosage: 1 MG, QD
     Route: 048
     Dates: start: 20201123
  15. ACYCLOVIR [Concomitant]
     Active Substance: ACYCLOVIR
     Indication: Encephalitis
     Dosage: 750 MG, TID
     Route: 048
     Dates: start: 20201113, end: 20201116
  16. FAMOTIDINE [Concomitant]
     Active Substance: FAMOTIDINE
     Indication: Prophylaxis
     Dosage: 40 MG, QD
     Route: 048
     Dates: start: 20201106
  17. FAMOTIDINE [Concomitant]
     Active Substance: FAMOTIDINE
     Dosage: 20 MG, QD
     Route: 048
     Dates: start: 20201203
  18. HYDROCHLOROTHIAZIDE [Concomitant]
     Active Substance: HYDROCHLOROTHIAZIDE
     Indication: Hypertension
     Dosage: 12.5 MG, QD
     Route: 048
     Dates: start: 20180101
  19. LEVOTHYROXINE [Concomitant]
     Active Substance: LEVOTHYROXINE
     Indication: Thyroidectomy
     Dosage: 112, 125 UG, OTHER
     Route: 048
     Dates: start: 2001
  20. ZOLPIDEM [Concomitant]
     Active Substance: ZOLPIDEM TARTRATE
     Indication: Anxiety
     Dosage: 10 MG, QD
     Route: 048
     Dates: start: 2018
  21. TRAZODONE [Concomitant]
     Active Substance: TRAZODONE HYDROCHLORIDE
     Indication: Anxiety
     Dosage: 100 MG, QD
     Route: 048
     Dates: start: 2018

REACTIONS (1)
  - Diabetic ketoacidosis [Recovered/Resolved]

NARRATIVE: CASE EVENT DATE: 20201213
